FAERS Safety Report 20126168 (Version 1)
Quarter: 2021Q4

REPORT INFORMATION
  Report Type: Spontaneous
  Country: CZ (occurrence: CZ)
  Receive Date: 20211129
  Receipt Date: 20211129
  Transmission Date: 20220304
  Serious: Yes (Other)
  Sender: FDA-Public Use
  Company Number: CZ-VIIV HEALTHCARE ULC-CZ2021EME242308

PATIENT
  Age: 49 Year
  Sex: Male

DRUGS (9)
  1. DOLUTEGRAVIR [Suspect]
     Active Substance: DOLUTEGRAVIR
     Indication: HIV infection
     Dosage: UNK
     Dates: start: 201903
  2. ABACAVIR SULFATE\DOLUTEGRAVIR SODIUM\LAMIVUDINE [Suspect]
     Active Substance: ABACAVIR SULFATE\DOLUTEGRAVIR SODIUM\LAMIVUDINE
     Indication: HIV infection
     Dosage: UNK
     Dates: start: 202006
  3. EMTRICITABINE\TENOFOVIR DISOPROXIL FUMARATE [Suspect]
     Active Substance: EMTRICITABINE\TENOFOVIR DISOPROXIL FUMARATE
     Indication: HIV infection
     Dosage: UNK
     Dates: start: 201903
  4. EPCLUSA [Suspect]
     Active Substance: SOFOSBUVIR\VELPATASVIR
     Indication: Hepatitis C
     Dosage: UNK
  5. ZOLPIDEM [Concomitant]
     Active Substance: ZOLPIDEM TARTRATE
     Indication: Product used for unknown indication
     Dosage: UNK
  6. TRAZODONE HYDROCHLORIDE [Concomitant]
     Active Substance: TRAZODONE HYDROCHLORIDE
     Indication: Product used for unknown indication
     Dosage: UNK
  7. LAMOTRIGINE [Concomitant]
     Active Substance: LAMOTRIGINE
     Indication: Product used for unknown indication
     Dosage: UNK
  8. PERINDOPRIL [Concomitant]
     Active Substance: PERINDOPRIL
     Indication: Product used for unknown indication
     Dosage: UNK
  9. LYRICA [Concomitant]
     Active Substance: PREGABALIN
     Indication: Product used for unknown indication
     Dosage: UNK

REACTIONS (16)
  - Polyneuropathy [Unknown]
  - Deafness [Unknown]
  - Type 2 diabetes mellitus [Unknown]
  - Hypertension [Unknown]
  - Mood swings [Recovered/Resolved]
  - Depression [Recovered/Resolved]
  - Vomiting [Unknown]
  - Abdominal pain [Unknown]
  - Proteinuria [Unknown]
  - Diarrhoea [Recovered/Resolved]
  - Liver disorder [Unknown]
  - Mental disorder [Unknown]
  - Weight increased [Recovered/Resolved]
  - Hypoacusis [Unknown]
  - Therapy cessation [Unknown]
  - Disease progression [Unknown]
